FAERS Safety Report 10541525 (Version 1)
Quarter: 2014Q4

REPORT INFORMATION
  Report Type: Spontaneous
  Country: DE (occurrence: DE)
  Receive Date: 20141024
  Receipt Date: 20141024
  Transmission Date: 20150529
  Serious: Yes (Other)
  Sender: FDA-Public Use
  Company Number: PHHY2014DE137743

PATIENT
  Sex: Male

DRUGS (1)
  1. LEPONEX [Suspect]
     Active Substance: CLOZAPINE
     Indication: SCHIZOPHRENIA
     Dosage: 300 MG, QD
     Route: 065

REACTIONS (5)
  - Insomnia [Unknown]
  - Restlessness [Unknown]
  - Fatigue [Unknown]
  - Paranoia [Unknown]
  - Asthenia [Unknown]
